FAERS Safety Report 6728160-8 (Version None)
Quarter: 2010Q2

REPORT INFORMATION
  Report Type: 
  Country: None (occurrence: None)
  Receive Date: 20100517
  Receipt Date: 20100507
  Transmission Date: 20101027
  Serious: Yes (Other)
  Sender: FDA-Public Use
  Company Number: A0858952A

PATIENT
  Age: 7 Year
  Sex: Male

DRUGS (1)
  1. FLOVENT [Suspect]
     Indication: ASTHMA
     Route: 055

REACTIONS (3)
  - ACCIDENTAL OVERDOSE [None]
  - ADRENAL SUPPRESSION [None]
  - SWELLING [None]
